FAERS Safety Report 7307736-3 (Version None)
Quarter: 2011Q1

REPORT INFORMATION
  Report Type: 
  Country: None (occurrence: None)
  Receive Date: 20110223
  Receipt Date: 20110210
  Transmission Date: 20110831
  Serious: Yes (Other)
  Sender: FDA-Public Use
  Company Number: US-ELI_LILLY_AND_COMPANY-US201102003464

PATIENT
  Age: 61 Year
  Sex: Female

DRUGS (5)
  1. CYMBALTA [Suspect]
     Dosage: 60 MG, EACH MORNING
  2. FLUOXETINE [Concomitant]
     Dosage: UNK, UNK
     Dates: start: 20100901, end: 20101001
  3. CYMBALTA [Suspect]
     Indication: DEPRESSION
     Dosage: 60 MG, DAILY (1/D)
     Dates: end: 20100901
  4. CYMBALTA [Suspect]
     Dosage: 60 MG, EACH EVENING
     Dates: start: 20101001
  5. XANAX [Concomitant]
     Dosage: 0.5 MG, UNK

REACTIONS (6)
  - PANIC ATTACK [None]
  - FEELING ABNORMAL [None]
  - SOMNOLENCE [None]
  - DRUG INEFFECTIVE [None]
  - ABNORMAL DREAMS [None]
  - KNEE OPERATION [None]
